FAERS Safety Report 16042200 (Version 1)
Quarter: 2019Q1

REPORT INFORMATION
  Report Type: Spontaneous
  Country: US (occurrence: US)
  Receive Date: 20190306
  Receipt Date: 20190306
  Transmission Date: 20190418
  Serious: No
  Sender: FDA-Public Use
  Company Number: US-AKORN PHARMACEUTICALS-2018AKN00247

PATIENT
  Age: 15 Year
  Sex: Male
  Weight: 58.96 kg

DRUGS (16)
  1. CLARAVIS [Suspect]
     Active Substance: ISOTRETINOIN
     Indication: ACNE CYSTIC
     Dosage: 40 MG, 1X/DAY
     Route: 048
     Dates: start: 20170926, end: 20180220
  2. FABIOR 0.1% FOAM [Concomitant]
     Dosage: 1 DOSAGE UNITS,1X/DAY AT BEDTIME
     Route: 061
  3. DOXYCYCINE [Concomitant]
     Dosage: 100 MG, 2X/DAY AS NEEDED
     Route: 048
  4. AVAR CLEANSER 10-5% EMULSION [Concomitant]
     Dosage: 1 DOSAGE UNITS, 1X/DAY AS NEEDED
     Route: 061
  5. MYORISAN [Suspect]
     Active Substance: ISOTRETINOIN
     Indication: ACNE CYSTIC
     Dosage: 40 MG, 1X/DAY
     Route: 048
     Dates: start: 20170926, end: 20180220
  6. DESONIDE. [Concomitant]
     Active Substance: DESONIDE
     Dosage: UNK UNK, 2X/DAY
     Route: 061
  7. PLEXION CLEANSER 9.8 - 4.8% LIQUID [Concomitant]
     Dosage: 1 DOSAGE UNITS, 1X/DAY AS NEEDED
     Route: 061
  8. MYORISAN [Suspect]
     Active Substance: ISOTRETINOIN
     Indication: ACNE
  9. ACZONE [Concomitant]
     Active Substance: DAPSONE
     Dosage: 1 DOSAGE UNITS, 1X/DAY AS NEEDED
     Route: 061
  10. NICAZEL FORTE [Concomitant]
     Dosage: 1 TABLETS, 2X/DAY AS NEEDED
     Route: 048
  11. EPIDUO [Concomitant]
     Active Substance: ADAPALENE\BENZOYL PEROXIDE
     Dosage: 1 DOSAGE UNITS, 1X/DAY AS NEEDED
     Route: 061
  12. MYORISAN [Suspect]
     Active Substance: ISOTRETINOIN
     Indication: ACNE CYSTIC
     Dosage: 40 MG, 1X/DAY
     Route: 048
     Dates: start: 20171127, end: 20180220
  13. MYORISAN [Suspect]
     Active Substance: ISOTRETINOIN
     Indication: ACNE
     Dosage: 40 MG, 2X/DAY
     Dates: end: 20180220
  14. EPIDUO [Concomitant]
     Active Substance: ADAPALENE\BENZOYL PEROXIDE
     Dosage: 1 DOSAGE UNITS, 1X/DAY AS NEEDED
     Route: 061
  15. CLARAVIS [Suspect]
     Active Substance: ISOTRETINOIN
     Indication: ACNE
  16. VITAMIN E [Concomitant]
     Active Substance: .ALPHA.-TOCOPHEROL
     Dosage: 400 U, 2X/DAY
     Route: 048

REACTIONS (10)
  - Vision blurred [Recovered/Resolved]
  - Skin lesion [Not Recovered/Not Resolved]
  - Impetigo [Unknown]
  - Head injury [Recovered/Resolved]
  - Scab [Not Recovered/Not Resolved]
  - Photophobia [Recovered/Resolved]
  - Visual impairment [Recovered/Resolved]
  - Off label use [Recovered/Resolved]
  - Headache [Recovered/Resolved]
  - Pain [Unknown]

NARRATIVE: CASE EVENT DATE: 20170926
